FAERS Safety Report 5401046-7 (Version None)
Quarter: 2007Q3

REPORT INFORMATION
  Report Type: 
  Country: None (occurrence: None)
  Receive Date: 20070726
  Receipt Date: 20070711
  Transmission Date: 20080115
  Serious: Yes (Hospitalization)
  Sender: FDA-Public Use
  Company Number: 2007001275

PATIENT
  Age: 67 Year
  Sex: Male
  Weight: 72.2 kg

DRUGS (3)
  1. ERLOTINIB (TABLET) (ERLOTINIB HCL) [Suspect]
     Indication: LUNG ADENOCARCINOMA
     Dosage: 150 MG (QD), ORAL
     Route: 048
     Dates: start: 20070627
  2. CARBOPLATIN [Suspect]
     Indication: LUNG ADENOCARCINOMA
     Dosage: AUC 6 (DAY 1 X 6 CYCLES), INTRAVENOUS
     Route: 042
     Dates: start: 20070627
  3. PACLITAXEL [Suspect]
     Indication: LUNG ADENOCARCINOMA
     Dosage: 200 MG/M^2 (DAY 1 X 6 CYCLES), INTRAVENOUS (NOT OTHERWISE SPECIFIED)
     Route: 042
     Dates: start: 20070627

REACTIONS (1)
  - FEBRILE NEUTROPENIA [None]
